FAERS Safety Report 5619308-7 (Version None)
Quarter: 2008Q1

REPORT INFORMATION
  Report Type: 
  Country: None (occurrence: None)
  Receive Date: 20080206
  Receipt Date: 20080129
  Transmission Date: 20080703
  Serious: Yes (Life-Threatening, Hospitalization)
  Sender: FDA-Public Use
  Company Number: LUP-0218

PATIENT
  Age: 10 Year
  Sex: Male

DRUGS (2)
  1. CEFTRIAXONE [Suspect]
     Indication: INFECTION
     Dosage: 1 GRAM TWICE DAILY, INTRAVENOUS
     Route: 042
  2. CEFTRIAXONE [Suspect]
     Indication: SKIN INFECTION
     Dosage: 1 GRAM TWICE DAILY, INTRAVENOUS
     Route: 042

REACTIONS (12)
  - ANURIA [None]
  - BLOOD CREATININE INCREASED [None]
  - HAEMOGLOBIN DECREASED [None]
  - MEDICAL DEVICE COMPLICATION [None]
  - MENTAL STATUS CHANGES [None]
  - PERITONEAL DIALYSIS [None]
  - PRURITUS GENERALISED [None]
  - RASH MACULO-PAPULAR [None]
  - RENAL TUBULAR NECROSIS [None]
  - SKIN INFECTION [None]
  - SOMNOLENCE [None]
  - SWELLING FACE [None]
